FAERS Safety Report 14145188 (Version 2)
Quarter: 2017Q4

REPORT INFORMATION
  Report Type: Spontaneous
  Country: CH (occurrence: CH)
  Receive Date: 20171031
  Receipt Date: 20171109
  Transmission Date: 20180321
  Serious: Yes (Hospitalization)
  Sender: FDA-Public Use
  Company Number: CH-PFIZER INC-2017459887

PATIENT
  Age: 66 Year
  Sex: Male

DRUGS (9)
  1. DETRUSITOL [Suspect]
     Active Substance: TOLTERODINE TARTRATE
     Indication: BLADDER SPASM
     Dosage: UNK
     Route: 048
     Dates: start: 201709, end: 20170929
  2. TAVANIC [Interacting]
     Active Substance: LEVOFLOXACIN
     Indication: PROSTATITIS
     Dosage: UNK
     Route: 048
     Dates: start: 201709, end: 20170929
  3. VOLTAREN [Concomitant]
     Active Substance: DICLOFENAC SODIUM
     Dosage: 100 MG, 1X/DAY (0-0-1-0)
     Route: 054
  4. CARDIAX ASS [Concomitant]
     Dosage: 100 MG, 1X/DAY (1-0-0-0)
  5. LEXOTANIL [Concomitant]
     Active Substance: BROMAZEPAM
     Dosage: 1.5 MG, 2X/DAY (1-0-1-0)
  6. PERINDOPRIL INDAPAMID [Concomitant]
     Active Substance: INDAPAMIDE\PERINDOPRIL
     Dosage: 10MG /2.5MG, 1X/DAY (1-0-0-0)
  7. BELOC ZOK [Concomitant]
     Active Substance: METOPROLOL SUCCINATE
     Dosage: 50 MG, 2X/DAY (0.5-0-0.5-0 OF 100MG)
  8. BETMIGA [Interacting]
     Active Substance: MIRABEGRON
     Indication: BLADDER SPASM
     Dosage: UNK
     Route: 048
     Dates: start: 201709, end: 20170929
  9. ATORVASTATIN [Concomitant]
     Active Substance: ATORVASTATIN
     Dosage: 40 MG, 1X/DAY (0-0-1-0)

REACTIONS (3)
  - Drug interaction [Recovered/Resolved]
  - Torsade de pointes [Recovered/Resolved]
  - Electrocardiogram QT prolonged [Recovered/Resolved]

NARRATIVE: CASE EVENT DATE: 20170929
